FAERS Safety Report 9336366 (Version 1)
Quarter: 2013Q2

REPORT INFORMATION
  Report Type: Spontaneous
  Country: US (occurrence: US)
  Receive Date: 20130607
  Receipt Date: 20130607
  Transmission Date: 20140414
  Serious: Yes (Other)
  Sender: FDA-Public Use
  Company Number: US-AMGEN-USASP2013035973

PATIENT
  Age: 58 Year
  Sex: Female
  Weight: 44.9 kg

DRUGS (4)
  1. PROLIA [Suspect]
     Indication: OSTEOPOROSIS POSTMENOPAUSAL
     Dosage: 60 MG, Q6MO
     Route: 058
     Dates: start: 20120831
  2. PROLIA [Suspect]
     Dosage: UNK
  3. PRISTIQ [Concomitant]
  4. CITALOPRAM [Concomitant]

REACTIONS (9)
  - Acute generalised exanthematous pustulosis [Unknown]
  - Urticaria [Not Recovered/Not Resolved]
  - Genital herpes [Not Recovered/Not Resolved]
  - Terminal insomnia [Unknown]
  - Gastric disorder [Recovered/Resolved]
  - Pruritus [Not Recovered/Not Resolved]
  - Abdominal pain upper [Recovered/Resolved]
  - Back pain [Recovered/Resolved]
  - Rash [Not Recovered/Not Resolved]
